FAERS Safety Report 13225716 (Version 1)
Quarter: 2017Q1

REPORT INFORMATION
  Report Type: Spontaneous
  Country: GB (occurrence: GB)
  Receive Date: 20170213
  Receipt Date: 20170213
  Transmission Date: 20170428
  Serious: Yes (Other)
  Sender: FDA-Public Use
  Company Number: GB-GLAXOSMITHKLINE-GB2017018329

PATIENT
  Age: 63 Year
  Sex: Male

DRUGS (1)
  1. AVAMYS [Suspect]
     Active Substance: FLUTICASONE FUROATE
     Indication: EAR CONGESTION
     Dosage: 55.2 ?G, QD,ONE SPRAY EACH NOSTRIL.
     Route: 045
     Dates: start: 20161006, end: 20161026

REACTIONS (5)
  - Lacrimation increased [Recovering/Resolving]
  - Drug ineffective [Unknown]
  - Rhinorrhoea [Recovering/Resolving]
  - Ageusia [Not Recovered/Not Resolved]
  - Anosmia [Not Recovered/Not Resolved]

NARRATIVE: CASE EVENT DATE: 20161010
